FAERS Safety Report 8558303-5 (Version None)
Quarter: 2012Q3

REPORT INFORMATION
  Report Type: 
  Country: None (occurrence: None)
  Receive Date: 20120801
  Receipt Date: 20120727
  Transmission Date: 20120928
  Serious: Yes (Other)
  Sender: FDA-Public Use
  Company Number: US-BAYER-2012-076154

PATIENT
  Age: 59 Year
  Sex: Female

DRUGS (6)
  1. ASPIRIN [Suspect]
  2. NEURONTIN [Concomitant]
     Dosage: 300 MG, UNK
     Route: 048
  3. COREG [Concomitant]
     Dosage: 12.5 MG, TID
     Route: 048
  4. NORVASC [Concomitant]
     Dosage: 10 MG, QD
     Route: 048
  5. PERCOCET [Concomitant]
     Indication: PAIN
     Dosage: 5/325 MG
     Route: 048
  6. VESICARE [Concomitant]
     Dosage: 10 MG, QD
     Route: 048

REACTIONS (1)
  - HAEMORRHAGE [None]
